FAERS Safety Report 10757315 (Version 1)
Quarter: 2015Q1

REPORT INFORMATION
  Report Type: Spontaneous
  Country: US (occurrence: None)
  Receive Date: 20150130
  Receipt Date: 20150130
  Transmission Date: 20150721
  Serious: Yes (Other)
  Sender: FDA-Public Use
  Company Number: INS201501-000022

PATIENT
  Age: 48 Year
  Sex: Female
  Weight: 56.69 kg

DRUGS (3)
  1. VIMPAT [Concomitant]
     Active Substance: LACOSAMIDE
  2. LAMICTAL [Concomitant]
     Active Substance: LAMOTRIGINE
  3. SUBSYS [Suspect]
     Active Substance: FENTANYL
     Indication: BACK PAIN
     Dosage: 800 MCG?
     Dates: start: 2014

REACTIONS (5)
  - Drug dose omission [None]
  - Radicular pain [None]
  - Asthenia [None]
  - Off label use [None]
  - Spinal fusion surgery [None]

NARRATIVE: CASE EVENT DATE: 20141222
